FAERS Safety Report 6507321-7 (Version None)
Quarter: 2009Q4

REPORT INFORMATION
  Report Type: 
  Country: None (occurrence: None)
  Receive Date: 20091221
  Receipt Date: 20091217
  Transmission Date: 20100525
  Serious: Yes (Death)
  Sender: FDA-Public Use
  Company Number: PHEH2009US18010

PATIENT
  Age: 20 Year
  Sex: Female

DRUGS (4)
  1. OXCARBAZEPINE [Suspect]
  2. ALPRAZOLAM [Suspect]
  3. OXYCODONE [Suspect]
  4. ETHANOL [Suspect]

REACTIONS (1)
  - DRUG TOXICITY [None]
